FAERS Safety Report 10477566 (Version 1)
Quarter: 2014Q3

REPORT INFORMATION
  Report Type: Report from Study
  Country: IN (occurrence: IN)
  Receive Date: 20140926
  Receipt Date: 20140926
  Transmission Date: 20150326
  Serious: Yes (Death)
  Sender: FDA-Public Use
  Company Number: PHHY2014IN123768

PATIENT
  Age: 66 Year
  Sex: Male

DRUGS (1)
  1. CERTICAN [Suspect]
     Active Substance: EVEROLIMUS
     Indication: TRANSPLANT
     Dosage: 0.25 MG, 3 DF IN MORNING AND 3 DF IN NIGHT
     Route: 048
     Dates: start: 20140902, end: 20140912

REACTIONS (1)
  - Blood potassium increased [Fatal]

NARRATIVE: CASE EVENT DATE: 20140912
